FAERS Safety Report 7978376-8 (Version None)
Quarter: 2011Q4

REPORT INFORMATION
  Report Type: 
  Country: None (occurrence: None)
  Receive Date: 20111214
  Receipt Date: 20111208
  Transmission Date: 20120403
  Serious: Yes (Death)
  Sender: FDA-Public Use
  Company Number: US-PFIZER INC-2011300878

PATIENT
  Sex: Female

DRUGS (1)
  1. VFEND [Suspect]
     Indication: MYELOID LEUKAEMIA
     Dosage: 200 MG, 2X/DAY

REACTIONS (1)
  - DEATH [None]
